FAERS Safety Report 14263919 (Version 1)
Quarter: 2017Q4

REPORT INFORMATION
  Report Type: Spontaneous
  Country: US (occurrence: US)
  Receive Date: 20171208
  Receipt Date: 20171208
  Transmission Date: 20180321
  Serious: No
  Sender: FDA-Public Use
  Company Number: US-ELI_LILLY_AND_COMPANY-US201712002177

PATIENT
  Age: 73 Year
  Sex: Female

DRUGS (4)
  1. BASAGLAR [Suspect]
     Active Substance: INSULIN GLARGINE
     Indication: DIABETES MELLITUS
     Dosage: 10 IU, EACH EVENING
     Dates: start: 201711
  2. BASAGLAR [Suspect]
     Active Substance: INSULIN GLARGINE
     Dosage: 10 IU, DAILY
     Dates: start: 201711
  3. METFORMIN [Concomitant]
     Active Substance: METFORMIN HYDROCHLORIDE
     Indication: PRODUCT USED FOR UNKNOWN INDICATION
     Dosage: 1000 MG, BID
     Route: 065
  4. GLIPIZIDE. [Concomitant]
     Active Substance: GLIPIZIDE
     Indication: PRODUCT USED FOR UNKNOWN INDICATION
     Dosage: 10 MG, BID
     Route: 065

REACTIONS (8)
  - Dysphonia [Unknown]
  - Dysgeusia [Unknown]
  - Dyspnoea [Unknown]
  - Chest discomfort [Unknown]
  - Blood glucose increased [Unknown]
  - Chest pain [Unknown]
  - Feeling jittery [Unknown]
  - Dry throat [Unknown]

NARRATIVE: CASE EVENT DATE: 201711
